FAERS Safety Report 11147584 (Version 3)
Quarter: 2015Q3

REPORT INFORMATION
  Report Type: Report from Study
  Country: US (occurrence: US)
  Receive Date: 20150529
  Receipt Date: 20150902
  Transmission Date: 20151125
  Serious: Yes (Death, Hospitalization, Other)
  Sender: FDA-Public Use
  Company Number: US-ALEXION PHARMACEUTICALS INC.-A201202353

PATIENT

DRUGS (1)
  1. SOLIRIS [Suspect]
     Active Substance: ECULIZUMAB
     Indication: PAROXYSMAL NOCTURNAL HAEMOGLOBINURIA
     Dosage: UNK
     Route: 042

REACTIONS (11)
  - Blood lactate dehydrogenase increased [Unknown]
  - Arthralgia [Unknown]
  - Packed red blood cell transfusion [Unknown]
  - Dehydration [Unknown]
  - Death [Fatal]
  - Haptoglobin increased [Unknown]
  - Unevaluable event [Unknown]
  - Endocarditis [Recovered/Resolved]
  - Platelet transfusion [Unknown]
  - Asthenia [Unknown]
  - Hypophagia [Unknown]

NARRATIVE: CASE EVENT DATE: 20121116
